FAERS Safety Report 5791330-X (Version None)
Quarter: 2008Q2

REPORT INFORMATION
  Report Type: 
  Country: None (occurrence: None)
  Receive Date: 20080626
  Receipt Date: 20080303
  Transmission Date: 20081010
  Serious: No
  Sender: FDA-Public Use
  Company Number: A0712853A

PATIENT
  Age: 43 Year
  Sex: Female

DRUGS (3)
  1. ALLI [Suspect]
  2. LEXAPRO [Concomitant]
  3. MULTI-VITAMIN [Concomitant]

REACTIONS (1)
  - RECTAL DISCHARGE [None]
